FAERS Safety Report 23658269 (Version 2)
Quarter: 2024Q2

REPORT INFORMATION
  Report Type: Spontaneous
  Country: BR (occurrence: BR)
  Receive Date: 20240321
  Receipt Date: 20240403
  Transmission Date: 20240715
  Serious: Yes (Other)
  Sender: FDA-Public Use
  Company Number: BR-009507513-2403BRA006052

PATIENT
  Sex: Female

DRUGS (4)
  1. PEMBROLIZUMAB [Suspect]
     Active Substance: PEMBROLIZUMAB
     Dosage: UNK
     Dates: start: 20230919, end: 20231215
  2. PEMBROLIZUMAB [Suspect]
     Active Substance: PEMBROLIZUMAB
     Dosage: UNK
     Dates: start: 20240115, end: 20240205
  3. CARBOPLATIN [Suspect]
     Active Substance: CARBOPLATIN
     Dates: start: 20230919, end: 20231215
  4. PACLITAXEL [Suspect]
     Active Substance: PACLITAXEL
     Dates: start: 20230919, end: 20231215

REACTIONS (9)
  - Central venous catheterisation [Unknown]
  - Central venous catheterisation [Unknown]
  - Central venous catheterisation [Unknown]
  - Catheter site pain [Unknown]
  - Catheter site related reaction [Unknown]
  - Catheter site erythema [Unknown]
  - Impaired healing [Unknown]
  - Postoperative wound infection [Unknown]
  - Stitch abscess [Unknown]

NARRATIVE: CASE EVENT DATE: 20231003
